FAERS Safety Report 5065509-9 (Version None)
Quarter: 2006Q3

REPORT INFORMATION
  Report Type: 
  Country: None (occurrence: None)
  Receive Date: 20060725
  Receipt Date: 20060712
  Transmission Date: 20061208
  Serious: Yes (Hospitalization)
  Sender: FDA-Public Use
  Company Number: 2006087670

PATIENT
  Age: 60 Year
  Sex: Male

DRUGS (1)
  1. LYRICA [Suspect]
     Indication: POLYNEUROPATHY
     Dosage: 150 MG (1 D),

REACTIONS (5)
  - CLAVICLE FRACTURE [None]
  - CONDITION AGGRAVATED [None]
  - FALL [None]
  - PAIN [None]
  - UPPER LIMB FRACTURE [None]
